FAERS Safety Report 8782314 (Version 1)
Quarter: 2012Q4

REPORT INFORMATION
  Report Type: 
  Country: US (occurrence: US)
  Receive Date: 20120913
  Receipt Date: 20120913
  Transmission Date: 20130627
  Serious: Yes (Hospitalization, Disabling, Other)
  Sender: FDA-Public Use
  Company Number: US-009507513-1110USA04115

PATIENT

DRUGS (7)
  1. FOSAMAX [Suspect]
     Indication: OSTEOPOROSIS
     Dosage: 10 mg, UNK
     Route: 048
     Dates: start: 199606, end: 2001
  2. FOSAMAX [Suspect]
     Dosage: 70 mg, UNK
     Route: 048
     Dates: start: 2001, end: 200912
  3. FOSAMAX [Suspect]
     Indication: OSTEOPOROSIS
     Route: 048
  4. FOSAMAX [Suspect]
     Indication: OSTEOPOROSIS PROPHYLAXIS
  5. CALCIUM (UNSPECIFIED) [Concomitant]
     Indication: OSTEOPOROSIS
     Dosage: 400 mg, qd
     Dates: start: 2001
  6. VITAMIN D (UNSPECIFIED) [Concomitant]
     Indication: OSTEOPOROSIS
     Dosage: 500 IU, qd
     Dates: start: 2001
  7. FOSAMAX [Suspect]
     Dosage: 70 mg, QW
     Route: 048
     Dates: start: 20081020, end: 20090607

REACTIONS (31)
  - Femur fracture [Not Recovered/Not Resolved]
  - Low turnover osteopathy [Not Recovered/Not Resolved]
  - Wrist fracture [Unknown]
  - Fall [Unknown]
  - Vitamin D deficiency [Unknown]
  - Oedema peripheral [Unknown]
  - Hypercholesterolaemia [Unknown]
  - Proteinuria [Unknown]
  - Muscle strain [Unknown]
  - Radiculitis lumbosacral [Unknown]
  - Eczema [Unknown]
  - Dermatitis contact [Unknown]
  - Cellulitis [Unknown]
  - Skin lesion [Unknown]
  - Movement disorder [Unknown]
  - Urinary tract infection [Unknown]
  - Nausea [Unknown]
  - Vomiting [Unknown]
  - Fall [Unknown]
  - Haemorrhagic anaemia [Unknown]
  - Contusion [Unknown]
  - Patellofemoral pain syndrome [Unknown]
  - Gait disturbance [Unknown]
  - Limb asymmetry [Unknown]
  - Vertigo [Recovered/Resolved]
  - Palpitations [Recovered/Resolved]
  - Hyperkeratosis [Not Recovered/Not Resolved]
  - Metatarsalgia [Unknown]
  - Foot deformity [Unknown]
  - Acquired claw toe [Unknown]
  - Removal of foreign body [Unknown]
